FAERS Safety Report 24578504 (Version 2)
Quarter: 2024Q4

REPORT INFORMATION
  Report Type: Spontaneous
  Country: US (occurrence: US)
  Receive Date: 20241105
  Receipt Date: 20241211
  Transmission Date: 20250115
  Serious: No
  Sender: ROCHE
  Company Number: US-ROCHE-10000120458

PATIENT
  Age: 19 Year
  Sex: Male
  Weight: 104.32 kg

DRUGS (14)
  1. XOLAIR [Suspect]
     Active Substance: OMALIZUMAB
     Indication: Mast cell activation syndrome
     Route: 058
     Dates: start: 202408
  2. XOLAIR [Suspect]
     Active Substance: OMALIZUMAB
     Indication: Urticaria
  3. MODAFINIL [Concomitant]
     Active Substance: MODAFINIL
     Indication: Narcolepsy
     Dosage: STARTED BEFORE XOLAIR
     Route: 048
  4. SERTRALINE [Concomitant]
     Active Substance: SERTRALINE HYDROCHLORIDE
     Indication: Depression
     Dosage: STARTED BEFORE XOLAIR
     Route: 048
  5. METHYLPHENIDATE [Concomitant]
     Active Substance: METHYLPHENIDATE
     Indication: Attention deficit hyperactivity disorder
     Dosage: TAKES IN THE MORNING; STARTED BEFORE XOLAIR
     Route: 048
  6. FAMOTIDINE [Concomitant]
     Active Substance: FAMOTIDINE
     Indication: Mast cell activation syndrome
     Dosage: TAKES (2) 20 MG TABLETS EACH TIME; STARTED BEFORE XOLAIR
     Route: 048
  7. LEVOCETIRIZINE [Concomitant]
     Active Substance: LEVOCETIRIZINE
     Indication: Mast cell activation syndrome
     Dosage: STARTED BEFORE XOLAIR
     Route: 048
  8. ATENOLOL [Concomitant]
     Active Substance: ATENOLOL
     Indication: Postural orthostatic tachycardia syndrome
     Dosage: STARTED BEFORE XOLAIR
     Route: 048
  9. MIDODRINE [Concomitant]
     Active Substance: MIDODRINE
     Dosage: STARTED BEFORE XOLAIR
     Route: 048
  10. RISPERIDONE [Concomitant]
     Active Substance: RISPERIDONE
     Indication: Anxiety
     Dosage: TAKES IN THE EVENING; STARTED BEFORE XOLAIR
     Route: 048
  11. HYDROXYZINE [Concomitant]
     Active Substance: HYDROXYZINE HYDROCHLORIDE
     Indication: Mast cell activation syndrome
     Dosage: TAKES IN THE EVENING; STARTED BEFORE XOLAIR
     Route: 048
  12. CROMOLYN SODIUM [Concomitant]
     Active Substance: CROMOLYN SODIUM
     Indication: Mast cell activation syndrome
     Dosage: 5 ML VIAL; TAKES WITH MEALS; STARTED BEFORE XOLAIR
     Route: 048
  13. OMEPRAZOLE [Concomitant]
     Active Substance: OMEPRAZOLE
     Indication: Mast cell activation syndrome
     Dosage: TAKES IN THE MORNING; STARTED BEFORE XOLAIR
     Route: 048
  14. OMEPRAZOLE [Concomitant]
     Active Substance: OMEPRAZOLE
     Indication: Ulcer

REACTIONS (4)
  - Off label use [Unknown]
  - Underdose [Unknown]
  - No adverse event [Unknown]
  - Device malfunction [Unknown]

NARRATIVE: CASE EVENT DATE: 20240801
